FAERS Safety Report 24547024 (Version 1)
Quarter: 2024Q4

REPORT INFORMATION
  Report Type: Report from Study
  Country: US (occurrence: US)
  Receive Date: 20241025
  Receipt Date: 20241025
  Transmission Date: 20250114
  Serious: Yes (Hospitalization)
  Sender: ABBVIE
  Company Number: US-ABBVIE-5972121

PATIENT
  Age: 59 Year
  Sex: Female

DRUGS (1)
  1. CREON [Suspect]
     Active Substance: PANCRELIPASE AMYLASE\PANCRELIPASE LIPASE\PANCRELIPASE PROTEASE
     Indication: Product used for unknown indication
     Route: 048
     Dates: start: 20241008

REACTIONS (6)
  - Cellulitis [Unknown]
  - Diarrhoea [Recovering/Resolving]
  - Diabetes mellitus [Unknown]
  - Peripheral swelling [Unknown]
  - Localised infection [Unknown]
  - Reading disorder [Unknown]

NARRATIVE: CASE EVENT DATE: 20241001
